FAERS Safety Report 7345895-7 (Version None)
Quarter: 2011Q1

REPORT INFORMATION
  Report Type: 
  Country: None (occurrence: None)
  Receive Date: 20110311
  Receipt Date: 20110302
  Transmission Date: 20110831
  Serious: No
  Sender: FDA-Public Use
  Company Number: US-BIOGENIDEC-2011BI008224

PATIENT
  Sex: Female

DRUGS (1)
  1. TYSABRI [Suspect]
     Indication: MULTIPLE SCLEROSIS
     Route: 042
     Dates: start: 20101228, end: 20110126

REACTIONS (4)
  - GASTROOESOPHAGEAL REFLUX DISEASE [None]
  - INFUSION RELATED REACTION [None]
  - HYPERSENSITIVITY [None]
  - ANTIBODY TEST POSITIVE [None]
